FAERS Safety Report 5769723 (Version 2)
Quarter: 2020Q3

REPORT INFORMATION
  Report Type: Spontaneous
  Country: DE (occurrence: None)
  Receive Date: 19990701
  Receipt Date: 20000301
  Transmission Date: 20201104
  Serious: Yes (Death)
  Sender: FDA-Public Use
  Company Number: LACT00399000404

PATIENT
  Age: 62 Year
  Sex: Male
  Weight: 60 kg

DRUGS (51)
  1. METOCLOPRAMIDE. [Suspect]
     Active Substance: METOCLOPRAMIDE
     Indication: NAUSEA
     Dosage: 1 DF BID IV
     Route: 042
     Dates: start: 19980416, end: 19980416
  2. POTASSIUM CHLORIDE. [Suspect]
     Active Substance: POTASSIUM CHLORIDE
     Indication: HYPOKALAEMIA
     Dosage: 1 DF TID PO
     Route: 048
     Dates: start: 19980331, end: 19980404
  3. TRANXILUM [Concomitant]
  4. ALLOPURINOL. [Suspect]
     Active Substance: ALLOPURINOL
     Indication: HYPERURICAEMIA
     Dosage: 1 DF QD PO
     Route: 048
     Dates: start: 19980325, end: 19980402
  5. CLAFORAN [Suspect]
     Active Substance: CEFOTAXIME SODIUM
     Indication: BALANOPOSTHITIS
     Dosage: 2 G BID IV
     Route: 042
     Dates: start: 19980402, end: 19980405
  6. TRAMADOL HYDROCHLORIDE. [Suspect]
     Active Substance: TRAMADOL HYDROCHLORIDE
     Indication: PAIN
     Dosage: 20 DF QID PO
     Route: 048
     Dates: end: 19980326
  7. LAXOBERAL [Suspect]
     Active Substance: SODIUM PICOSULFATE
     Indication: CONSTIPATION
     Dosage: DAILY PO
     Route: 048
     Dates: start: 19980411, end: 19980411
  8. UNSPECIFIED INGREDIENT [Concomitant]
     Active Substance: UNSPECIFIED INGREDIENT
  9. AMPICILLIN [Suspect]
     Active Substance: AMPICILLIN
     Indication: INFECTION
     Dosage: 2 G BID IV
     Route: 042
     Dates: start: 19980416, end: 19980418
  10. URBASON [Suspect]
     Active Substance: METHYLPREDNISOLONE
     Dosage: SEE IMAGE
     Dates: start: 19980419, end: 19980419
  11. CLEMASTINE FUMARATE. [Suspect]
     Active Substance: CLEMASTINE FUMARATE
     Indication: DERMATITIS
     Dosage: SEE IMAGE
     Dates: start: 19980402, end: 19980403
  12. NIZATIDINE. [Suspect]
     Active Substance: NIZATIDINE
     Indication: PROPHYLAXIS
     Dosage: 1 DF QD PO
     Route: 048
     Dates: start: 19980408, end: 19980414
  13. MYRRH [Suspect]
     Active Substance: MYRRH
     Indication: NECK PAIN
     Dosage: DAILY TP
     Dates: start: 19980413, end: 19980414
  14. HEPARIN [Suspect]
     Active Substance: HEPARIN SODIUM
     Indication: THROMBOSIS PROPHYLAXIS
     Dosage: 7500 IU BID SC
     Route: 058
  15. TROSPIUM CHLORIDE. [Suspect]
     Active Substance: TROSPIUM CHLORIDE
     Indication: INCONTINENCE
     Dosage: 2 DF TID PO
     Route: 048
     Dates: start: 19980325, end: 19980402
  16. SITOSTEROLS [Suspect]
     Active Substance: SITOSTEROLS
     Indication: MICTURITION URGENCY
     Dosage: 1 DF TID PO
     Route: 048
     Dates: start: 19980326, end: 19980401
  17. OXAZEPAM. [Suspect]
     Active Substance: OXAZEPAM
     Indication: SLEEP DISORDER
     Dosage: DAILY PO
     Route: 048
     Dates: start: 19980417, end: 19980418
  18. ZYRTEC [Suspect]
     Active Substance: CETIRIZINE HYDROCHLORIDE
     Indication: DERMATITIS
     Dosage: 1 DF BID PO
     Route: 048
     Dates: start: 19980406, end: 19980407
  19. TRIAMCINOLONE ACETONIDE\ZINC OXIDE. [Suspect]
     Active Substance: TRIAMCINOLONE ACETONIDE\ZINC OXIDE
     Indication: BALANOPOSTHITIS
     Dosage: DAILY TP
     Dates: start: 19980402, end: 19980404
  20. MINERAL OIL. [Suspect]
     Active Substance: MINERAL OIL
     Indication: DRY SKIN
     Dosage: DAILY TP
     Dates: start: 19980417
  21. PANTOZOL [Suspect]
     Active Substance: PANTOPRAZOLE SODIUM
     Indication: PROPHYLAXIS
     Dosage: 1 DF QD PO
     Route: 048
     Dates: end: 19980407
  22. THEOPHYLLINE [Suspect]
     Active Substance: THEOPHYLLINE ANHYDROUS
     Indication: ASTHMA
     Dosage: 1 DF BID PO
     Route: 048
  23. TROSPIUM CHLORIDE. [Suspect]
     Active Substance: TROSPIUM CHLORIDE
     Indication: AUTOMATIC BLADDER
     Dosage: 2 DF TID PO
     Route: 048
     Dates: start: 19980401, end: 19980404
  24. LACTULOSE. [Suspect]
     Active Substance: LACTULOSE
     Indication: LIVER DISORDER
     Dosage: 1 DF QD PO
     Route: 048
     Dates: start: 19980331, end: 19980402
  25. SODIUM CHLORIDE. [Suspect]
     Active Substance: SODIUM CHLORIDE
     Indication: DEHYDRATION
     Dosage: 2500 ML, QD IV
     Route: 042
     Dates: start: 19980415, end: 19980419
  26. LASIX [Concomitant]
     Active Substance: FUROSEMIDE
  27. KALINOR (POTASSIUM CHLORIDE) [Concomitant]
     Active Substance: POTASSIUM CHLORIDE
  28. UNSPECIFIED INGREDIENT [Suspect]
     Active Substance: UNSPECIFIED INGREDIENT
     Indication: INFECTION
     Dosage: 2 G BID IV
     Route: 042
     Dates: start: 19980417, end: 19980418
  29. COTRIM FORTE [Suspect]
     Active Substance: SULFAMETHOXAZOLE\TRIMETHOPRIM
     Indication: URINARY TRACT INFECTION
     Dosage: 1 DF BID PO
     Route: 048
     Dates: start: 19980326, end: 19980329
  30. CODEINE\DICLOFENAC [Suspect]
     Active Substance: CODEINE\DICLOFENAC
     Indication: PAIN
     Dosage: DAILY PO
     Route: 048
     Dates: start: 19980326, end: 19980327
  31. SEREVENT DISKUS [Suspect]
     Active Substance: SALMETEROL XINAFOATE
     Indication: ASTHMA
     Dosage: 2 DF BI IH
     Route: 055
  32. RINGERS SOLUTION [Suspect]
     Active Substance: CALCIUM CHLORIDE\POTASSIUM CHLORIDE\SODIUM CHLORIDE
     Indication: DEHYDRATION
     Dosage: 1 DF QD TP
     Dates: start: 19980329, end: 19980329
  33. PASPERTIN [Concomitant]
  34. DIAZEPAM. [Concomitant]
     Active Substance: DIAZEPAM
  35. NOVALGIN (DIPYRONE) [Suspect]
     Active Substance: DIPYRONE
     Dosage: SEE IMAGE
     Dates: start: 19980329, end: 19980329
  36. LASIX [Suspect]
     Active Substance: FUROSEMIDE
     Indication: POLYURIA
     Dosage: 40 MG QD IV
     Route: 042
     Dates: start: 19980415, end: 19980416
  37. ACETAMINOPHEN. [Suspect]
     Active Substance: ACETAMINOPHEN
     Indication: PYREXIA
     Dosage: DAILY PO
     Route: 048
     Dates: start: 19980328, end: 19980328
  38. DEXTROSE. [Suspect]
     Active Substance: DEXTROSE
     Indication: PARENTERAL NUTRITION
     Dosage: 1000 ML QD IV
     Route: 042
     Dates: start: 19980416, end: 19980419
  39. LICHTENSTEIN GELB [Concomitant]
     Indication: PAIN
     Dosage: 1 DF QD PO
     Route: 048
     Dates: start: 19980328, end: 19980329
  40. FOSFOCINE [Concomitant]
     Active Substance: FOSFOMYCIN
  41. GENTAMICIN SULFATE. [Suspect]
     Active Substance: GENTAMICIN SULFATE
     Indication: BALANOPOSTHITIS
     Dosage: 160 MG QD IV
     Route: 042
     Dates: start: 19980402, end: 19980405
  42. NITRAZEPAM [Suspect]
     Active Substance: NITRAZEPAM
     Indication: SLEEP DISORDER
     Dosage: 1 DF QD PO
     Route: 048
     Dates: start: 19980408, end: 19980414
  43. UREA. [Suspect]
     Active Substance: UREA
     Indication: DRY SKIN
     Dosage: DAILY TP
     Dates: start: 19980417
  44. FLUTICASONE PROPIONATE. [Suspect]
     Active Substance: FLUTICASONE PROPIONATE
     Indication: ASTHMA
     Dosage: 2 DF TID IH
     Route: 055
  45. METHIONINE [Suspect]
     Active Substance: METHIONINE
     Indication: URETHRITIS
     Dosage: 2 DF TID PO
     Route: 048
     Dates: start: 19980329, end: 19980404
  46. POVIDONE?IODINE. [Suspect]
     Active Substance: POVIDONE-IODINE
     Indication: BALANOPOSTHITIS
     Dosage: 1 DF QD TP
     Dates: start: 19980401, end: 19980416
  47. LACTULOSE. [Suspect]
     Active Substance: LACTULOSE
     Indication: CONSTIPATION
     Dosage: 10 ML QD PO
     Route: 048
     Dates: start: 19980402, end: 19980402
  48. NITRAZEPAM [Suspect]
     Active Substance: NITRAZEPAM
     Indication: INSOMNIA
     Dosage: DAILY PO
     Route: 048
     Dates: start: 19980330, end: 19980331
  49. OFLOXACIN. [Suspect]
     Active Substance: OFLOXACIN
     Indication: URETHRITIS
     Dosage: 2 DF QD PO
     Route: 048
     Dates: start: 19980329, end: 19980402
  50. TRIFLUPROMAZINE HYDROCHLORIDE. [Suspect]
     Active Substance: TRIFLUPROMAZINE HYDROCHLORIDE
     Indication: NAUSEA
     Dosage: DAILY IV
     Route: 042
     Dates: start: 19980416, end: 19980416
  51. DEXPANTHENOL. [Suspect]
     Active Substance: DEXPANTHENOL
     Indication: NECK PAIN
     Dosage: 1 DF QID PO
     Route: 048
     Dates: start: 19980412, end: 19980418

REACTIONS (2)
  - Peritonitis [None]
  - Stevens-Johnson syndrome [None]

NARRATIVE: CASE EVENT DATE: 19980418
